FAERS Safety Report 8630152 (Version 2)
Quarter: 2013Q4

REPORT INFORMATION
  Report Type: Spontaneous
  Country: US (occurrence: US)
  Receive Date: 20120622
  Receipt Date: 20131203
  Transmission Date: 20140711
  Serious: Yes (Hospitalization)
  Sender: FDA-Public Use
  Company Number: US-ASTRAZENECA-2012SE36334

PATIENT
  Age: 17172 Day
  Sex: Male
  Weight: 77.1 kg

DRUGS (19)
  1. NEXIUM [Suspect]
     Indication: GASTRIC DISORDER
     Dosage: 1 TABLET THREE TIMES A DAY
     Route: 048
     Dates: start: 2000, end: 2004
  2. NEXIUM [Suspect]
     Indication: GASTRIC DISORDER
     Route: 048
     Dates: start: 200906
  3. PROTONIX [Suspect]
     Route: 065
     Dates: start: 2004, end: 2009
  4. PROTONIX [Suspect]
     Route: 065
     Dates: start: 200906
  5. ZANTAC [Concomitant]
  6. TAGAMET [Concomitant]
     Dates: start: 2000
  7. PEPCID [Concomitant]
     Dates: start: 1998, end: 2000
  8. OPIODS [Concomitant]
     Dates: start: 1989
  9. ALENDRONATE SODIUM [Concomitant]
  10. OYSTER SHELL CALCIUM [Concomitant]
  11. RANITIDINE [Concomitant]
  12. LOVASTATIN [Concomitant]
  13. CLARITIN [Concomitant]
  14. TEGRETOL [Concomitant]
  15. ALBUTEROL [Concomitant]
  16. PHENYTOIN [Concomitant]
  17. PREDNISONE [Concomitant]
  18. CARBAMAZEPINE [Concomitant]
  19. PRILOSEC OTC [Concomitant]

REACTIONS (11)
  - Hiatus hernia [Unknown]
  - Angiopathy [Unknown]
  - Osteoporosis [Unknown]
  - Ankle fracture [Unknown]
  - Back disorder [Unknown]
  - Dyspnoea [Unknown]
  - Foot fracture [Unknown]
  - Fall [Unknown]
  - Arthritis [Unknown]
  - Peripheral arterial occlusive disease [Unknown]
  - Osteopenia [Unknown]
